FAERS Safety Report 23839936 (Version 3)
Quarter: 2024Q2

REPORT INFORMATION
  Report Type: Spontaneous
  Country: JP (occurrence: JP)
  Receive Date: 20240510
  Receipt Date: 20240606
  Transmission Date: 20240716
  Serious: No
  Sender: FDA-Public Use
  Company Number: JP-KYOWAKIRIN-2024KK010458

PATIENT
  Age: 84 Year
  Sex: Male

DRUGS (1)
  1. ROMIPLOSTIM [Suspect]
     Active Substance: ROMIPLOSTIM
     Indication: Immune thrombocytopenia
     Dosage: 70 UG, ROMIPLATE FOR S.C. INJECTION HAD NOT YET BEEN STARTED AT HOSPITAL U
     Route: 058

REACTIONS (1)
  - No adverse event [Unknown]
